FAERS Safety Report 11528434 (Version 1)
Quarter: 2015Q3

REPORT INFORMATION
  Report Type: Spontaneous
  Country: US (occurrence: US)
  Receive Date: 20150921
  Receipt Date: 20150921
  Transmission Date: 20151125
  Serious: No
  Sender: FDA-Public Use
  Company Number: US-TEVA-567156USA

PATIENT
  Age: 57 Year
  Sex: Female
  Weight: 74.91 kg

DRUGS (5)
  1. OMEPRAZOLE. [Concomitant]
     Active Substance: OMEPRAZOLE
  2. LYRICA [Concomitant]
     Active Substance: PREGABALIN
     Dates: start: 20150403
  3. LIBRAX [Concomitant]
     Active Substance: CHLORDIAZEPOXIDE HYDROCHLORIDE\CLIDINIUM BROMIDE
     Indication: DIVERTICULITIS
  4. CLONAZEPAM. [Suspect]
     Active Substance: CLONAZEPAM
     Indication: GASTROOESOPHAGEAL REFLUX DISEASE
     Route: 065
  5. CHLORDIAZEPOXIDE W/CLIDINIUM [Concomitant]
     Dosage: 5/2.5 MG

REACTIONS (2)
  - Product use issue [Unknown]
  - Off label use [Unknown]
